FAERS Safety Report 5506145-7 (Version None)
Quarter: 2007Q4

REPORT INFORMATION
  Report Type: 
  Country: None (occurrence: None)
  Receive Date: 20071105
  Receipt Date: 20071031
  Transmission Date: 20080405
  Serious: Yes (Death)
  Sender: FDA-Public Use
  Company Number: PHHO2007BR18182

PATIENT
  Age: 80 Year
  Sex: Male

DRUGS (2)
  1. BRICANYL COMP. [Concomitant]
  2. FORASEQ [Suspect]
     Dosage: 12/400 MCG

REACTIONS (1)
  - DEATH [None]
